FAERS Safety Report 4665489-1 (Version None)
Quarter: 2005Q2

REPORT INFORMATION
  Report Type: 
  Country: None (occurrence: None)
  Receive Date: 20050519
  Receipt Date: 20041119
  Transmission Date: 20051028
  Serious: No
  Sender: FDA-Public Use
  Company Number: US-BRISTOL-MYERS SQUIBB COMPANY-12772828

PATIENT
  Sex: Female

DRUGS (4)
  1. CYTOXAN [Suspect]
     Route: 042
     Dates: start: 20041027, end: 20041027
  2. ADRIAMYCIN PFS [Concomitant]
  3. DECADRON [Concomitant]
     Indication: PREMEDICATION
     Route: 042
  4. KYTRIL [Concomitant]
     Indication: PREMEDICATION
     Route: 042

REACTIONS (1)
  - PAIN IN EXTREMITY [None]
